FAERS Safety Report 7493562-1 (Version None)
Quarter: 2011Q2

REPORT INFORMATION
  Report Type: 
  Country: None (occurrence: None)
  Receive Date: 20110520
  Receipt Date: 20110517
  Transmission Date: 20111010
  Serious: Yes (Death)
  Sender: FDA-Public Use
  Company Number: US-ABBOTT-11P-163-0705693-00

PATIENT
  Sex: Male
  Weight: 86.26 kg

DRUGS (4)
  1. UNKNOWN OTHER MEDICATIONS [Concomitant]
     Indication: PRODUCT USED FOR UNKNOWN INDICATION
     Dates: end: 20110201
  2. HUMIRA [Suspect]
     Indication: RHEUMATOID ARTHRITIS
     Dosage: LAST SHIPMENT SENT OUT TO PATIENT WAS 12 JAN 2011.
     Route: 058
     Dates: start: 20070112
  3. VALIUM [Concomitant]
     Indication: PAIN
     Dates: end: 20110201
  4. VICODIN [Concomitant]
     Indication: PAIN
     Dates: end: 20110201

REACTIONS (3)
  - ARTHRALGIA [None]
  - CARBON MONOXIDE POISONING [None]
  - COMPLETED SUICIDE [None]
